FAERS Safety Report 25787973 (Version 1)
Quarter: 2025Q3

REPORT INFORMATION
  Report Type: Spontaneous
  Country: US (occurrence: US)
  Receive Date: 20250910
  Receipt Date: 20250910
  Transmission Date: 20251021
  Serious: Yes (Other)
  Sender: VIIV
  Company Number: US-VIIV HEALTHCARE- US2025113184

PATIENT

DRUGS (2)
  1. VOCABRIA [Suspect]
     Active Substance: CABOTEGRAVIR SODIUM
     Indication: Product used for unknown indication
  2. TRUVADA [Concomitant]
     Active Substance: EMTRICITABINE\TENOFOVIR DISOPROXIL FUMARATE
     Indication: Product used for unknown indication

REACTIONS (3)
  - Suicidal ideation [Unknown]
  - Mental disorder [Unknown]
  - Condition aggravated [Unknown]
